FAERS Safety Report 25918828 (Version 1)
Quarter: 2025Q4

REPORT INFORMATION
  Report Type: Spontaneous
  Country: CN (occurrence: CN)
  Receive Date: 20251014
  Receipt Date: 20251014
  Transmission Date: 20260118
  Serious: Yes (Death, Other)
  Sender: AZURITY PHARMACEUTICALS
  Company Number: CN-AZURITY PHARMACEUTICALS, INC.-AZR202509-003074

PATIENT
  Sex: Female

DRUGS (1)
  1. IVERMECTIN [Suspect]
     Active Substance: IVERMECTIN
     Indication: Scabies
     Dosage: 200 MILLILITER, QHS (1%, 2 G)
     Route: 062

REACTIONS (12)
  - Brain death [Fatal]
  - Acute respiratory failure [Fatal]
  - Brain oedema [Fatal]
  - Intracranial pressure increased [Fatal]
  - Metabolic acidosis [Fatal]
  - Renal impairment [Fatal]
  - Toxicity to various agents [Fatal]
  - Pneumonia [Fatal]
  - Gastrointestinal disorder [Fatal]
  - Hypercoagulation [Fatal]
  - Overdose [Unknown]
  - Intentional product misuse [Unknown]

NARRATIVE: CASE EVENT DATE: 20240101
